FAERS Safety Report 18598824 (Version 1)
Quarter: 2020Q4

REPORT INFORMATION
  Report Type: Other
  Country: US (occurrence: US)
  Receive Date: 20201210
  Receipt Date: 20201210
  Transmission Date: 20210114
  Serious: Yes (Hospitalization, Other)
  Sender: FDA-Public Use
  Company Number: US-ROCHE-2725641

PATIENT
  Age: 46 Year
  Sex: Female
  Weight: 81.72 kg

DRUGS (4)
  1. SOLU-MEDROL [Concomitant]
     Active Substance: METHYLPREDNISOLONE SODIUM SUCCINATE
     Indication: PREMEDICATION
     Route: 065
  2. BENADRYL [Concomitant]
     Active Substance: DIPHENHYDRAMINE HYDROCHLORIDE
     Indication: PREMEDICATION
     Route: 065
  3. KEPPRA [Concomitant]
     Active Substance: LEVETIRACETAM
     Indication: SEIZURE
     Route: 048
     Dates: end: 20200528
  4. OCREVUS [Suspect]
     Active Substance: OCRELIZUMAB
     Indication: RELAPSING MULTIPLE SCLEROSIS
     Dosage: DATES OF TREATMENT WERE 16/APR/2018, 08/NOV/2018, 02/OCT/2019, 23/DEC/2019, AND 30/JUN/2020.
     Route: 042
     Dates: start: 201801

REACTIONS (7)
  - Fluid retention [Not Recovered/Not Resolved]
  - Visual impairment [Unknown]
  - Multiple sclerosis relapse [Not Recovered/Not Resolved]
  - Hypertension [Recovered/Resolved]
  - Multiple sclerosis [Not Recovered/Not Resolved]
  - Pneumonia [Not Recovered/Not Resolved]
  - Vomiting [Not Recovered/Not Resolved]

NARRATIVE: CASE EVENT DATE: 202001
